FAERS Safety Report 4606788-9 (Version None)
Quarter: 2005Q1

REPORT INFORMATION
  Report Type: 
  Country: None (occurrence: None)
  Receive Date: 20050310
  Receipt Date: 20050225
  Transmission Date: 20050727
  Serious: Yes (Hospitalization)
  Sender: FDA-Public Use
  Company Number: 2005-BP-03081BP

PATIENT
  Sex: Male

DRUGS (5)
  1. COMBIVENT [Suspect]
     Indication: CHRONIC OBSTRUCTIVE PULMONARY DISEASE
     Dosage: 4 PUF(SEE TEX, 18 MCG/103MCG (2 PUFFS TWICE DAILY), IH
     Route: 055
     Dates: start: 20041201
  2. SPIRIVA (TIOTROPIM BROMIDE) [Concomitant]
  3. ADVAIR DISKUS 100/50 [Concomitant]
  4. NEBULIZED ALBERTEROL SOLUTION [Concomitant]
  5. NEBULIZED IPRATROPIUM SOLUTION [Concomitant]

REACTIONS (3)
  - ASTHMA [None]
  - LUNG INFECTION [None]
  - PHARMACEUTICAL PRODUCT COMPLAINT [None]
